FAERS Safety Report 13199877 (Version 4)
Quarter: 2017Q1

REPORT INFORMATION
  Report Type: Report from Study
  Country: None (occurrence: US)
  Receive Date: 20170208
  Receipt Date: 20170321
  Transmission Date: 20170428
  Serious: Yes (Hospitalization)
  Sender: FDA-Public Use
  Company Number: US-ABBVIE-17K-163-1863088-00

PATIENT
  Age: 31 Year
  Sex: Female

DRUGS (4)
  1. IRON [Concomitant]
     Active Substance: IRON
     Indication: PRODUCT USED FOR UNKNOWN INDICATION
  2. HUMIRA [Suspect]
     Active Substance: ADALIMUMAB
     Route: 058
     Dates: start: 201610
  3. LIALDA [Concomitant]
     Active Substance: MESALAMINE
     Indication: PRODUCT USED FOR UNKNOWN INDICATION
  4. HUMIRA [Suspect]
     Active Substance: ADALIMUMAB
     Indication: CROHN^S DISEASE
     Route: 058
     Dates: start: 201210, end: 201610

REACTIONS (7)
  - Stress [Recovered/Resolved]
  - White blood cell count increased [Recovered/Resolved]
  - Crohn^s disease [Recovered/Resolved]
  - Abdominal adhesions [Not Recovered/Not Resolved]
  - Drug ineffective [Recovering/Resolving]
  - Haematochezia [Recovered/Resolved]
  - Colonoscopy abnormal [Unknown]

NARRATIVE: CASE EVENT DATE: 201610
